FAERS Safety Report 9684256 (Version 1)
Quarter: 2013Q4

REPORT INFORMATION
  Report Type: Spontaneous
  Country: US (occurrence: None)
  Receive Date: 20131111
  Receipt Date: 20131111
  Transmission Date: 20140711
  Serious: Yes (Disabling)
  Sender: FDA-Public Use
  Company Number: None

PATIENT
  Age: 55 Year
  Sex: Male
  Weight: 78.93 kg

DRUGS (1)
  1. FERROUS SULFATE [Suspect]
     Indication: ANAEMIA
     Dosage: 1 ONCE DAILY TAKEN BY MOUTH
     Route: 048
     Dates: start: 20131025, end: 20131101

REACTIONS (2)
  - Muscle spasms [None]
  - Diarrhoea haemorrhagic [None]
